FAERS Safety Report 5448090-1 (Version None)
Quarter: 2007Q3

REPORT INFORMATION
  Report Type: 
  Country: None (occurrence: None)
  Receive Date: 20070801
  Receipt Date: 20070426
  Transmission Date: 20080115
  Serious: No
  Sender: FDA-Public Use
  Company Number: 2007-US-000208

PATIENT
  Age: 10 Year
  Sex: Male

DRUGS (2)
  1. INCRELEX [Suspect]
     Dosage: 26 UT, BID, SUBCUTANEOUS; 16 UT, BID, SUBCUTANEOUS
     Route: 058
     Dates: start: 20070413
  2. INCRELEX [Suspect]
     Dosage: 26 UT, BID, SUBCUTANEOUS; 16 UT, BID, SUBCUTANEOUS
     Route: 058
     Dates: start: 20070419

REACTIONS (3)
  - DIZZINESS [None]
  - HEADACHE [None]
  - STOMACH DISCOMFORT [None]
